FAERS Safety Report 12824067 (Version 5)
Quarter: 2017Q2

REPORT INFORMATION
  Report Type: Spontaneous
  Country: US (occurrence: US)
  Receive Date: 20161006
  Receipt Date: 20170414
  Transmission Date: 20170830
  Serious: No
  Sender: FDA-Public Use
  Company Number: US-ACTELION-A-NJ2016-143153

PATIENT
  Age: 88 Year
  Sex: Female

DRUGS (1)
  1. VALCHLOR [Suspect]
     Active Substance: MECHLORETHAMINE
     Indication: MYCOSIS FUNGOIDES
     Dosage: UNK
     Route: 061
     Dates: start: 20160720

REACTIONS (5)
  - Depression [Unknown]
  - Alopecia [Recovered/Resolved]
  - Herpes zoster [Unknown]
  - Depressed mood [Unknown]
  - Malaise [Unknown]
